FAERS Safety Report 11475520 (Version 2)
Quarter: 2016Q1

REPORT INFORMATION
  Report Type: Spontaneous
  Country: US (occurrence: US)
  Receive Date: 20150909
  Receipt Date: 20160211
  Transmission Date: 20160525
  Serious: No
  Sender: FDA-Public Use
  Company Number: US-ACTELION PHARMACEUTICALS US, INC.-A-NJ2015-118569

PATIENT
  Age: 68 Year
  Sex: Female

DRUGS (9)
  1. CLINDAMYCIN [Concomitant]
     Active Substance: CLINDAMYCIN\CLINDAMYCIN PHOSPHATE
     Dosage: 150 MG, UNK
  2. VALCHLOR [Suspect]
     Active Substance: MECHLORETHAMINE
     Indication: MYCOSIS FUNGOIDES
     Dosage: UNK
     Route: 061
     Dates: start: 20140801
  3. ATENOLOL. [Concomitant]
     Active Substance: ATENOLOL
     Dosage: 50 MG, UNK
  4. IMIQUIMOD. [Concomitant]
     Active Substance: IMIQUIMOD
     Dosage: 5 %, UNK
  5. LOSARTAN AND HYDROCHLOROTHIAZIDE [Concomitant]
     Active Substance: HYDROCHLOROTHIAZIDE\LOSARTAN POTASSIUM
     Dosage: 100-12.5 MG
  6. TARGRETIN [Concomitant]
     Active Substance: BEXAROTENE
     Dosage: 1 %, UNK
  7. CLOBETASOL [Concomitant]
     Active Substance: CLOBETASOL
     Dosage: 0.05 %, UNK
  8. LEVOTHYROXINE. [Concomitant]
     Active Substance: LEVOTHYROXINE
     Dosage: 150 MCG, UNK
  9. TRICOR [Concomitant]
     Active Substance: FENOFIBRATE
     Dosage: 145 MG, UNK

REACTIONS (4)
  - Skin exfoliation [Not Recovered/Not Resolved]
  - Application site swelling [Recovered/Resolved]
  - Application site irritation [Unknown]
  - Application site warmth [Recovered/Resolved]
